FAERS Safety Report 7720569-9 (Version None)
Quarter: 2011Q3

REPORT INFORMATION
  Report Type: 
  Country: None (occurrence: None)
  Receive Date: 20110831
  Receipt Date: 20110825
  Transmission Date: 20111222
  Serious: Yes (Hospitalization)
  Sender: FDA-Public Use
  Company Number: DE-SANOFI-AVENTIS-2010SA002564

PATIENT
  Age: 61 Year
  Sex: Female
  Weight: 50 kg

DRUGS (5)
  1. OXALIPLATIN [Suspect]
     Route: 041
     Dates: start: 20090928, end: 20090928
  2. CAPECITABINE [Suspect]
     Route: 048
     Dates: end: 20091007
  3. LYRICA [Concomitant]
     Route: 048
     Dates: start: 20091120
  4. OXALIPLATIN [Suspect]
     Indication: RECTAL CANCER
     Route: 041
     Dates: start: 20090831, end: 20090831
  5. CAPECITABINE [Suspect]
     Indication: RECTAL CANCER
     Route: 048
     Dates: start: 20090831

REACTIONS (1)
  - IMPAIRED HEALING [None]
